FAERS Safety Report 22357275 (Version 2)
Quarter: 2024Q4

REPORT INFORMATION
  Report Type: Spontaneous
  Country: BR (occurrence: BR)
  Receive Date: 20230524
  Receipt Date: 20241116
  Transmission Date: 20250114
  Serious: Yes (Death)
  Sender: CELLTRION
  Company Number: BR-CELLTRION INC.-2023BR010549

PATIENT

DRUGS (1)
  1. INFLIXIMAB [Suspect]
     Active Substance: INFLIXIMAB
     Indication: Product used for unknown indication

REACTIONS (1)
  - Death [Fatal]
